FAERS Safety Report 4396656-2 (Version None)
Quarter: 2004Q3

REPORT INFORMATION
  Report Type: 
  Country: None (occurrence: None)
  Receive Date: 20040713
  Receipt Date: 20040713
  Transmission Date: 20050211
  Serious: Yes (Other)
  Sender: FDA-Public Use
  Company Number: None

PATIENT
  Age: 43 Year
  Sex: Male

DRUGS (7)
  1. LEVOFLOXACIN [Suspect]
     Indication: GASTRIC BYPASS
     Dosage: 500 MG IV QD
     Route: 042
     Dates: start: 20040702, end: 20040705
  2. LEVOFLOXACIN [Suspect]
     Indication: INTESTINAL ANASTOMOTIC LEAK
     Dosage: 500 MG IV QD
     Route: 042
     Dates: start: 20040702, end: 20040705
  3. TPN [Concomitant]
  4. PIROXICAM [Concomitant]
  5. NORVASC [Concomitant]
  6. PAXIL [Concomitant]
  7. MS CONTIN [Concomitant]

REACTIONS (1)
  - PRURITUS [None]
